FAERS Safety Report 4648294-1 (Version None)
Quarter: 2005Q2

REPORT INFORMATION
  Report Type: 
  Country: None (occurrence: None)
  Receive Date: 20050331
  Receipt Date: 20041222
  Transmission Date: 20051028
  Serious: No
  Sender: FDA-Public Use
  Company Number: 04P-163-0284717-00

PATIENT
  Age: 77 Year
  Sex: Female

DRUGS (3)
  1. HUMIRA [Suspect]
     Indication: RHEUMATOID ARTHRITIS
     Dosage: 40 MG, 1 IN 2 WK, SUBCUTANEOUS
     Route: 058
     Dates: start: 20041101, end: 20041201
  2. METHOTREXATE [Concomitant]
  3. WARFARIN SODIUM [Concomitant]

REACTIONS (2)
  - DRUG INEFFECTIVE [None]
  - LOCALISED INFECTION [None]
